FAERS Safety Report 23605448 (Version 1)
Quarter: 2024Q1

REPORT INFORMATION
  Report Type: Report from Study
  Country: US (occurrence: US)
  Receive Date: 20240307
  Receipt Date: 20240307
  Transmission Date: 20240410
  Serious: Yes (Hospitalization)
  Sender: FDA-Public Use
  Company Number: US-SA-SAC20230215000004

PATIENT
  Age: 48 Year
  Sex: Male

DRUGS (2)
  1. AGALSIDASE BETA [Suspect]
     Active Substance: AGALSIDASE BETA
     Indication: Fabry^s disease
     Dosage: 70 IU, QOW
     Route: 042
     Dates: start: 20230125
  2. COLESTIPOL [Concomitant]
     Active Substance: COLESTIPOL
     Indication: Gastrointestinal disorder
     Dosage: UNK

REACTIONS (16)
  - Lung disorder [Recovering/Resolving]
  - Malaise [Not Recovered/Not Resolved]
  - Arthralgia [Not Recovered/Not Resolved]
  - Asthenia [Not Recovered/Not Resolved]
  - Drug ineffective [Unknown]
  - Illness [Recovering/Resolving]
  - Decreased appetite [Recovering/Resolving]
  - Inflammation [Recovering/Resolving]
  - Brain fog [Not Recovered/Not Resolved]
  - Sinusitis [Recovered/Resolved]
  - Sinus pain [Recovering/Resolving]
  - Respiratory disorder [Recovering/Resolving]
  - Postoperative wound infection [Recovering/Resolving]
  - Hyperhidrosis [Not Recovered/Not Resolved]
  - Pain [Not Recovered/Not Resolved]
  - Cough [Recovering/Resolving]

NARRATIVE: CASE EVENT DATE: 20230101
